FAERS Safety Report 10030092 (Version 2)
Quarter: 2014Q1

REPORT INFORMATION
  Report Type: Spontaneous
  Country: US (occurrence: US)
  Receive Date: 20140323
  Receipt Date: 20140323
  Transmission Date: 20141002
  Serious: No
  Sender: FDA-Public Use
  Company Number: US-ALLERGAN-1303284US

PATIENT
  Sex: Female

DRUGS (2)
  1. LATISSE 0.03% [Suspect]
     Indication: GROWTH OF EYELASHES
     Dosage: UNK UNK, QHS
     Route: 061
     Dates: start: 2011
  2. EYE LUBRICATING AGENT NOS [Concomitant]
     Indication: EYE LUBRICATION THERAPY
     Dosage: UNK UNK, PRN
     Route: 047

REACTIONS (5)
  - Application site discolouration [Not Recovered/Not Resolved]
  - Diplopia [Not Recovered/Not Resolved]
  - Drug ineffective [Unknown]
  - Vision blurred [Unknown]
  - Trichorrhexis [Not Recovered/Not Resolved]
